FAERS Safety Report 13455415 (Version 1)
Quarter: 2017Q2

REPORT INFORMATION
  Report Type: Spontaneous
  Country: US (occurrence: US)
  Receive Date: 20170418
  Receipt Date: 20170418
  Transmission Date: 20170830
  Serious: Yes (Other)
  Sender: FDA-Public Use
  Company Number: US-BAYER-2017-068615

PATIENT
  Age: 29 Year
  Sex: Female

DRUGS (5)
  1. CYCLOSPORINE. [Suspect]
     Active Substance: CYCLOSPORINE
     Indication: SEGMENTED HYALINISING VASCULITIS
     Dosage: 100-200 MG/DAY
  2. PENTOXIFYLLINE. [Suspect]
     Active Substance: PENTOXIFYLLINE
     Indication: SEGMENTED HYALINISING VASCULITIS
     Dosage: 1200 MG, QD
  3. ACETYLSALICYLIC ACID({=100 MG) [Suspect]
     Active Substance: ASPIRIN
     Indication: SEGMENTED HYALINISING VASCULITIS
     Dosage: 75-150 MG/DAY
  4. CORTICOSTEROID NOS [Suspect]
     Active Substance: CORTICOSTEROID NOS
     Indication: SEGMENTED HYALINISING VASCULITIS
     Dosage: 10-40 MG/DAY
     Route: 048
  5. AZATHIOPRINE. [Suspect]
     Active Substance: AZATHIOPRINE
     Indication: SEGMENTED HYALINISING VASCULITIS
     Dosage: 100-150 MG/DAY

REACTIONS (6)
  - Diabetes mellitus [None]
  - Hirsutism [None]
  - Hypertension [None]
  - Off label use [None]
  - Cushingoid [None]
  - Central obesity [None]
